FAERS Safety Report 6400207-8 (Version None)
Quarter: 2009Q4

REPORT INFORMATION
  Report Type: 
  Country: None (occurrence: None)
  Receive Date: 20091014
  Receipt Date: 20091005
  Transmission Date: 20100525
  Serious: Yes (Other)
  Sender: FDA-Public Use
  Company Number: US-JNJFOC-20091002655

PATIENT
  Sex: Male
  Weight: 88.45 kg

DRUGS (10)
  1. DITROPAN XL [Suspect]
     Route: 048
  2. DITROPAN XL [Suspect]
     Route: 048
  3. DITROPAN XL [Suspect]
     Indication: HYPERTONIC BLADDER
     Route: 048
  4. OXYBUTYNIN CHLORIDE [Suspect]
     Indication: HYPERTONIC BLADDER
     Route: 048
  5. REGLAN [Suspect]
     Indication: NAUSEA
     Route: 065
  6. CYMBALTA [Concomitant]
     Indication: DEPRESSION
     Route: 065
  7. AMLODIPINE [Concomitant]
     Indication: HYPERTENSION
     Route: 065
  8. ATENOLOL [Concomitant]
     Indication: HYPERTENSION
     Route: 065
  9. LIPITOR [Concomitant]
     Indication: BLOOD CHOLESTEROL INCREASED
     Route: 065
  10. ASPIRIN [Concomitant]
     Route: 065

REACTIONS (7)
  - ATTENTION DEFICIT/HYPERACTIVITY DISORDER [None]
  - BLOOD PROLACTIN INCREASED [None]
  - DRUG INEFFECTIVE [None]
  - FLATULENCE [None]
  - GASTROOESOPHAGEAL REFLUX DISEASE [None]
  - HYPOGONADISM [None]
  - NAUSEA [None]
